FAERS Safety Report 25230358 (Version 1)
Quarter: 2025Q2

REPORT INFORMATION
  Report Type: Spontaneous
  Country: PT (occurrence: PT)
  Receive Date: 20250423
  Receipt Date: 20250423
  Transmission Date: 20250716
  Serious: Yes (Hospitalization, Other)
  Sender: GILEAD
  Company Number: PT-GILEAD-2025-0710216

PATIENT
  Age: 46 Year
  Sex: Female

DRUGS (1)
  1. TRODELVY [Suspect]
     Active Substance: SACITUZUMAB GOVITECAN-HZIY
     Indication: Product used for unknown indication
     Route: 065

REACTIONS (9)
  - Anal fissure [Unknown]
  - Neutropenia [Unknown]
  - Metastases to bone [Unknown]
  - Disease progression [Unknown]
  - Intracranial mass [Unknown]
  - Liver function test abnormal [Unknown]
  - Pleural disorder [Unknown]
  - Liver disorder [Unknown]
  - Adrenomegaly [Unknown]

NARRATIVE: CASE EVENT DATE: 20240131
